FAERS Safety Report 6041956-3 (Version None)
Quarter: 2009Q1

REPORT INFORMATION
  Report Type: 
  Country: None (occurrence: None)
  Receive Date: 20090116
  Receipt Date: 20090113
  Transmission Date: 20090719
  Serious: Yes (Other)
  Sender: FDA-Public Use
  Company Number: US-PFIZER INC-2005023346

PATIENT
  Sex: Male
  Weight: 61.7 kg

DRUGS (3)
  1. INHALED HUMAN INSULIN [Suspect]
     Indication: TYPE 1 DIABETES MELLITUS
     Dosage: UNK
     Route: 055
     Dates: start: 20020903, end: 20040922
  2. *INSULIN LISPRO [Suspect]
     Indication: TYPE 1 DIABETES MELLITUS
     Dosage: 19 IU, 1X/DAY
     Route: 058
     Dates: start: 20040923
  3. *INSULIN GLARGINE [Suspect]
     Indication: TYPE 1 DIABETES MELLITUS
     Dosage: UNK
     Route: 058
     Dates: start: 20020903, end: 20040922

REACTIONS (1)
  - MYCOBACTERIUM AVIUM COMPLEX INFECTION [None]
